FAERS Safety Report 15577802 (Version 2)
Quarter: 2018Q4

REPORT INFORMATION
  Report Type: Report from Study
  Country: CH (occurrence: CH)
  Receive Date: 20181102
  Receipt Date: 20181108
  Transmission Date: 20190205
  Serious: Yes (Other)
  Sender: FDA-Public Use
  Company Number: CH-TEVA-2018-CH-968756

PATIENT
  Age: 59 Year
  Sex: Female

DRUGS (6)
  1. NATIVE L-ASPARAGINASE [Suspect]
     Active Substance: ASPARAGINASE
     Dosage: 6000 IU/ME2 DURING LATE INTENSIFICATION (ON DAYS 8, 10, 12, 20, 22, 24, 26, AND 28)
     Route: 065
  2. NATIVE L-ASPARAGINASE [Suspect]
     Active Substance: ASPARAGINASE
     Indication: B PRECURSOR TYPE ACUTE LEUKAEMIA
     Dosage: 6000 IU/ME2 DURING INDUCTION (ON DAYS 8, 10, 12, 20, 22, 24, 26, AND 28)
     Route: 065
  3. NATIVE L-ASPARAGINASE [Suspect]
     Active Substance: ASPARAGINASE
     Dosage: 10,000 IU/ME2 DURING CONSOLIDATION (ON DAYS 1 AND 15)
     Route: 065
  4. ARAC [Suspect]
     Active Substance: CYTARABINE
     Indication: B PRECURSOR TYPE ACUTE LEUKAEMIA
     Dosage: CONSOLIDATION THERAPY
     Route: 065
  5. VORICONAZOLE. [Suspect]
     Active Substance: VORICONAZOLE
     Indication: PRODUCT USED FOR UNKNOWN INDICATION
     Route: 065
  6. METOCLOPRAMIDE. [Suspect]
     Active Substance: METOCLOPRAMIDE
     Indication: PRODUCT USED FOR UNKNOWN INDICATION
     Route: 065

REACTIONS (2)
  - Hyperammonaemia [Recovered/Resolved]
  - Toxic encephalopathy [Recovered/Resolved]
